FAERS Safety Report 4610498-1 (Version None)
Quarter: 2005Q1

REPORT INFORMATION
  Report Type: 
  Country: None (occurrence: None)
  Receive Date: 20050314
  Receipt Date: 20050303
  Transmission Date: 20050727
  Serious: Yes (Hospitalization)
  Sender: FDA-Public Use
  Company Number: 2005-03-0226

PATIENT
  Sex: Male

DRUGS (1)
  1. INTRON A [Suspect]
     Dates: start: 20050105

REACTIONS (6)
  - MEDICATION ERROR [None]
  - NEOPLASM [None]
  - NERVE COMPRESSION [None]
  - PAIN [None]
  - SCIATIC NERVE INJURY [None]
  - TREATMENT NONCOMPLIANCE [None]
